FAERS Safety Report 8992964 (Version 1)
Quarter: 2013Q1

REPORT INFORMATION
  Report Type: Spontaneous
  Country: US (occurrence: US)
  Receive Date: 20130102
  Receipt Date: 20130102
  Transmission Date: 20140127
  Serious: Yes (Other)
  Sender: FDA-Public Use
  Company Number: US-JNJFOC-20121213848

PATIENT
  Sex: Male

DRUGS (2)
  1. ZYRTEC-D [Suspect]
     Route: 048
  2. ZYRTEC-D [Suspect]
     Indication: MULTIPLE ALLERGIES
     Route: 048

REACTIONS (1)
  - Hepatitis [Unknown]
